FAERS Safety Report 10024645 (Version 3)
Quarter: 2014Q2

REPORT INFORMATION
  Report Type: Spontaneous
  Country: US (occurrence: US)
  Receive Date: 20140320
  Receipt Date: 20140617
  Transmission Date: 20141212
  Serious: Yes (Hospitalization, Disabling)
  Sender: FDA-Public Use
  Company Number: US-ASTRAZENECA-2012SE78385

PATIENT
  Age: 703 Month
  Sex: Female

DRUGS (36)
  1. SYMBICORT [Suspect]
     Indication: ASTHMA
     Dosage: 160/4.5 MCG, TWO PUFFS BID
     Route: 055
  2. NEXIUM [Suspect]
     Indication: GASTROOESOPHAGEAL REFLUX DISEASE
     Route: 048
     Dates: end: 20140306
  3. PRILOSEC [Suspect]
     Route: 048
  4. ATROVENT SPRAY [Concomitant]
     Indication: ASTHMA
     Dosage: TWO SPRAYS BID
     Route: 045
  5. ATROVENT SPRAY [Concomitant]
     Indication: MULTIPLE ALLERGIES
     Dosage: TWO SPRAYS BID
     Route: 045
  6. ALLEGRA [Concomitant]
     Indication: ASTHMA
     Route: 048
  7. ALLEGRA [Concomitant]
     Indication: MULTIPLE ALLERGIES
     Route: 048
  8. SINGULAIR [Concomitant]
     Indication: MULTIPLE ALLERGIES
     Route: 048
  9. XOPENEX HFA [Concomitant]
     Indication: ASTHMA PROPHYLAXIS
     Dosage: AS REQUIRED
     Route: 055
  10. FLONASE [Concomitant]
     Indication: MULTIPLE ALLERGIES
     Dosage: ONE SPRAY BID
  11. FLONASE [Concomitant]
     Indication: ASTHMA
     Dosage: ONE SPRAY BID
  12. EPIPEN [Concomitant]
     Indication: ILL-DEFINED DISORDER
     Dosage: 0.3 MG AS REQUIRED
  13. BYSTOLIC [Concomitant]
     Indication: HYPERTENSION
     Route: 048
  14. BYSTOLIC [Concomitant]
     Indication: HYPOTENSION
     Route: 048
  15. CARDIZEM [Concomitant]
     Indication: BLOOD PRESSURE ABNORMAL
     Route: 048
  16. COZAAR [Concomitant]
     Indication: BLOOD PRESSURE ABNORMAL
     Route: 048
  17. LANOXIN [Concomitant]
     Indication: CARDIAC DISORDER
     Route: 048
  18. LASIX [Concomitant]
     Indication: FLUID RETENTION
     Route: 048
  19. CYMBALTA [Concomitant]
     Indication: SERUM SEROTONIN DECREASED
     Route: 048
  20. FLECTORPAD [Concomitant]
     Indication: BACK PAIN
     Route: 061
  21. CALCIUM/VITAMIN D [Concomitant]
     Indication: BLOOD CALCIUM DECREASED
     Dosage: 600/50, TWO TABLETS DAILY
     Route: 048
  22. CALCIUM/VITAMIN D [Concomitant]
     Indication: VITAMIN D DECREASED
     Dosage: 600/50, TWO TABLETS DAILY
     Route: 048
  23. TYLENOL [Concomitant]
     Indication: PAIN
     Route: 048
  24. GENERIC WALMART BRAND STOOL SOFTENER [Concomitant]
     Indication: FAECES HARD
     Route: 048
  25. MIRALAX [Concomitant]
     Indication: GASTROINTESTINAL MOTILITY DISORDER
     Dosage: ONCE DAILY
     Route: 048
  26. AMBIEN [Concomitant]
     Indication: INSOMNIA
     Route: 048
  27. VALIUM [Concomitant]
     Indication: MUSCLE SPASMS
     Route: 048
  28. DOMPERIDONE [Concomitant]
     Indication: GASTRIC DISORDER
     Dosage: 5 MG THIRTY MINUTES AC
     Route: 048
  29. LINZESS [Concomitant]
     Indication: ILL-DEFINED DISORDER
     Route: 048
  30. MIDODRINE [Concomitant]
     Indication: HYPOTENSION
     Route: 048
  31. IVIG INFUSIONS [Concomitant]
     Indication: IMMUNOGLOBULINS ABNORMAL
     Dosage: EVERY 3 WEEK
     Route: 042
  32. NEURONTIN [Concomitant]
     Indication: HYPOAESTHESIA
     Dosage: 300MG E/O AM, HS
  33. NEURONTIN [Concomitant]
     Indication: NEUROPATHY PERIPHERAL
     Dosage: 300MG E/O AM, HS
  34. LORTAB [Concomitant]
     Indication: PAIN
  35. PREVACID [Concomitant]
  36. PROTONIX [Concomitant]

REACTIONS (13)
  - Guillain-Barre syndrome [Recovering/Resolving]
  - Hypersomnia [Unknown]
  - Fatigue [Not Recovered/Not Resolved]
  - Dysgeusia [Not Recovered/Not Resolved]
  - Regurgitation [Not Recovered/Not Resolved]
  - Dyspepsia [Unknown]
  - Decreased appetite [Not Recovered/Not Resolved]
  - Tension [Unknown]
  - Dysphonia [Not Recovered/Not Resolved]
  - Drug ineffective [Unknown]
  - Off label use [Unknown]
  - Intentional product misuse [Unknown]
  - Drug dose omission [Unknown]
